FAERS Safety Report 12613208 (Version 2)
Quarter: 2016Q3

REPORT INFORMATION
  Report Type: Spontaneous
  Country: US (occurrence: US)
  Receive Date: 20160802
  Receipt Date: 20160905
  Transmission Date: 20161109
  Serious: Yes (Other)
  Sender: FDA-Public Use
  Company Number: US-AMGEN-USASP2016097099

PATIENT
  Age: 58 Year
  Sex: Male

DRUGS (3)
  1. PROLIA [Suspect]
     Active Substance: DENOSUMAB
     Indication: PARATHYROID TUMOUR MALIGNANT
     Dosage: 60 MG, UNK
     Route: 065
  2. CINACALCET HCL [Suspect]
     Active Substance: CINACALCET HYDROCHLORIDE
     Indication: HYPERCALCAEMIA
     Dosage: UNK
     Route: 065
  3. XGEVA [Suspect]
     Active Substance: DENOSUMAB
     Indication: PARATHYROID TUMOUR MALIGNANT
     Dosage: 120 MG, UNK
     Route: 065

REACTIONS (11)
  - Drug ineffective [Unknown]
  - Hypocalcaemia [Not Recovered/Not Resolved]
  - Hypophosphataemia [Unknown]
  - Drug intolerance [Unknown]
  - Metastases to liver [Unknown]
  - Acidosis hyperchloraemic [Unknown]
  - Inappropriate schedule of drug administration [Unknown]
  - Hyperkalaemia [Unknown]
  - Hypomagnesaemia [Unknown]
  - Blood parathyroid hormone increased [Recovering/Resolving]
  - Off label use [Unknown]
